FAERS Safety Report 7458882-5 (Version None)
Quarter: 2011Q2

REPORT INFORMATION
  Report Type: 
  Country: None (occurrence: None)
  Receive Date: 20110504
  Receipt Date: 20110427
  Transmission Date: 20111010
  Serious: Yes (Hospitalization, Other)
  Sender: FDA-Public Use
  Company Number: PHHY2008JP11878

PATIENT
  Age: 3 Year
  Sex: Male

DRUGS (11)
  1. SIROLIMUS [Concomitant]
  2. CELLCEPT [Concomitant]
  3. NEORAL [Suspect]
     Dosage: 60 MG,
     Route: 048
     Dates: start: 20031101
  4. POLYGAM S/D [Suspect]
  5. BAKTAR [Concomitant]
     Route: 048
  6. ZOVIRAX [Concomitant]
  7. CERTICAN [Suspect]
     Indication: HEART TRANSPLANT
     Dosage: UNK
     Route: 048
     Dates: start: 20051208
  8. VALGANCICLOVIR [Concomitant]
  9. CERTICAN [Suspect]
     Dosage: 0.75 MG, UNK
     Route: 048
     Dates: start: 20070809, end: 20080104
  10. CYCLOSPORINE [Concomitant]
  11. CERTICAN [Suspect]
     Dosage: 0.5 MG
     Route: 048
     Dates: start: 20051208, end: 20070808

REACTIONS (6)
  - ORAL HERPES [None]
  - EPSTEIN-BARR VIRUS ASSOCIATED LYMPHOPROLIFERATIVE DISORDER [None]
  - PNEUMONIA [None]
  - LYMPHADENOPATHY [None]
  - ANAL FISTULA [None]
  - HYPERCHOLESTEROLAEMIA [None]
